FAERS Safety Report 20614340 (Version 1)
Quarter: 2022Q1

REPORT INFORMATION
  Report Type: Spontaneous
  Country: US (occurrence: US)
  Receive Date: 20220321
  Receipt Date: 20220321
  Transmission Date: 20220423
  Serious: No
  Sender: FDA-Public Use
  Company Number: US-SA-SAC20220311000090

PATIENT
  Age: 71 Year
  Sex: Male

DRUGS (12)
  1. DUPIXENT [Suspect]
     Active Substance: DUPILUMAB
     Indication: Dermatitis atopic
     Dosage: 300 MG, QOW
     Route: 058
  2. PERMETHRIN [Concomitant]
     Active Substance: PERMETHRIN
  3. METFORMIN [Concomitant]
     Active Substance: METFORMIN HYDROCHLORIDE
  4. LANSOPRAZOLE [Concomitant]
     Active Substance: LANSOPRAZOLE
  5. ZOLPIDEM TARTRATE [Concomitant]
     Active Substance: ZOLPIDEM TARTRATE
  6. HYDROXYZINE HYDROCHLORIDE [Concomitant]
     Active Substance: HYDROXYZINE HYDROCHLORIDE
  7. ROSUVASTATIN CALCIUM [Concomitant]
     Active Substance: ROSUVASTATIN CALCIUM
  8. SYNTHROID [Concomitant]
     Active Substance: LEVOTHYROXINE SODIUM
  9. TESTOSTERONE [Concomitant]
     Active Substance: TESTOSTERONE
  10. PREDNISONE [Concomitant]
     Active Substance: PREDNISONE
  11. BETAMETHASONE DIPROPIONATE [Concomitant]
     Active Substance: BETAMETHASONE DIPROPIONATE
  12. TRIAMCINOLONE ACETONIDE [Concomitant]
     Active Substance: TRIAMCINOLONE ACETONIDE

REACTIONS (4)
  - Acne [Unknown]
  - Dry skin [Unknown]
  - Pruritus [Unknown]
  - Therapeutic response delayed [Unknown]

NARRATIVE: CASE EVENT DATE: 20220101
